FAERS Safety Report 11089346 (Version 1)
Quarter: 2015Q2

REPORT INFORMATION
  Report Type: Spontaneous
  Country: DE (occurrence: DE)
  Receive Date: 20150505
  Receipt Date: 20150505
  Transmission Date: 20150821
  Serious: Yes (Other)
  Sender: FDA-Public Use
  Company Number: DE-ACCORD-030504

PATIENT
  Age: 48 Year
  Sex: Male

DRUGS (3)
  1. BLEOMYCIN [Suspect]
     Active Substance: BLEOMYCIN SULFATE
     Indication: TESTICULAR SEMINOMA (PURE)
     Dosage: THREE CYCLES RECEIVED
  2. CISPLATIN. [Suspect]
     Active Substance: CISPLATIN
     Indication: TESTICULAR SEMINOMA (PURE)
     Dosage: THREE CYCLES RECEIVED
  3. ETOPOSIDE. [Suspect]
     Active Substance: ETOPOSIDE
     Indication: TESTICULAR SEMINOMA (PURE)
     Dosage: THREE CYCLES RECEIVED

REACTIONS (12)
  - Renal impairment [Unknown]
  - Dyspnoea [Recovering/Resolving]
  - Pneumonitis [Recovering/Resolving]
  - Venous thrombosis [Unknown]
  - Glutamate dehydrogenase increased [Unknown]
  - Anaemia [Unknown]
  - Abdominal pain [Unknown]
  - Hiccups [Unknown]
  - Splenic infarction [Unknown]
  - Thalamic infarction [Unknown]
  - Alopecia [Unknown]
  - Aphasia [Recovered/Resolved]
